FAERS Safety Report 7129163-4 (Version None)
Quarter: 2010Q4

REPORT INFORMATION
  Report Type: 
  Country: None (occurrence: None)
  Receive Date: 20101104
  Receipt Date: 20101028
  Transmission Date: 20110411
  Serious: Yes (Hospitalization)
  Sender: FDA-Public Use
  Company Number: 2010SP009218

PATIENT
  Age: 26 Year
  Sex: Female
  Weight: 59.8748 kg

DRUGS (1)
  1. NUVARING [Suspect]
     Indication: CONTRACEPTION
     Dates: start: 20030101, end: 20080301

REACTIONS (7)
  - CHOLELITHIASIS [None]
  - MULTIPLE INJURIES [None]
  - PNEUMONIA [None]
  - PULMONARY EMBOLISM [None]
  - PULMONARY INFARCTION [None]
  - PYELONEPHRITIS [None]
  - RESPIRATORY ARREST [None]
